FAERS Safety Report 4469230-7 (Version None)
Quarter: 2004Q4

REPORT INFORMATION
  Report Type: 
  Country: None (occurrence: None)
  Receive Date: 20041008
  Receipt Date: 20040929
  Transmission Date: 20050328
  Serious: Yes (Hospitalization)
  Sender: FDA-Public Use
  Company Number: 200413086JP

PATIENT
  Age: 33 Year
  Sex: Female
  Weight: 29 kg

DRUGS (1)
  1. LASIX [Suspect]
     Dosage: DOSE: 20-40 MG
     Dates: start: 19950101

REACTIONS (7)
  - HYPOALDOSTERONISM [None]
  - HYPOKALAEMIA [None]
  - LUMBAR VERTEBRAL FRACTURE [None]
  - METABOLIC ALKALOSIS [None]
  - NEPHRITIS INTERSTITIAL [None]
  - OEDEMA [None]
  - RENAL IMPAIRMENT [None]
